APPROVED DRUG PRODUCT: TETRABENAZINE
Active Ingredient: TETRABENAZINE
Strength: 12.5MG
Dosage Form/Route: TABLET;ORAL
Application: A213621 | Product #001
Applicant: AJANTA PHARMA LTD
Approved: Dec 4, 2020 | RLD: No | RS: No | Type: DISCN